FAERS Safety Report 8337250-8 (Version None)
Quarter: 2012Q2

REPORT INFORMATION
  Report Type: 
  Country: None (occurrence: None)
  Receive Date: 20120504
  Receipt Date: 20120427
  Transmission Date: 20120825
  Serious: Yes (Hospitalization, Other)
  Sender: FDA-Public Use
  Company Number: US-AMGEN-USASP2010012375

PATIENT
  Age: 52 Year
  Sex: Female

DRUGS (2)
  1. ENBREL [Suspect]
     Indication: PSORIATIC ARTHROPATHY
     Dosage: 25 MG, 2 TIMES/WK
     Dates: start: 20030901, end: 20101001
  2. ENBREL [Suspect]
     Indication: PSORIASIS
     Dosage: 25 MG, Q2WK
     Route: 058

REACTIONS (7)
  - MYELOFIBROSIS [None]
  - CARDIAC DISORDER [None]
  - PSORIASIS [None]
  - INFECTIOUS MONONUCLEOSIS [None]
  - PSORIATIC ARTHROPATHY [None]
  - JOINT SWELLING [None]
  - ARTHRITIS [None]
